FAERS Safety Report 9321583 (Version 2)
Quarter: 2013Q2

REPORT INFORMATION
  Report Type: Spontaneous
  Country: US (occurrence: US)
  Receive Date: 20130531
  Receipt Date: 20130628
  Transmission Date: 20140414
  Serious: Yes (Other)
  Sender: FDA-Public Use
  Company Number: US-ELI_LILLY_AND_COMPANY-US201305007175

PATIENT
  Age: 84 Year
  Sex: Male

DRUGS (9)
  1. FORTEO [Suspect]
     Indication: OSTEOPOROSIS
     Dosage: 20 UG, QD
     Route: 065
     Dates: start: 20130325
  2. FORTEO [Suspect]
     Dosage: 20 UG, QD
     Route: 065
     Dates: start: 20130520
  3. NEUPRO [Concomitant]
     Indication: PARKINSON^S DISEASE
     Dosage: PATCH
  4. TAMSULOSIN [Concomitant]
     Indication: PROSTATOMEGALY
  5. DOXYCYCLINE [Concomitant]
     Indication: EYE INFECTION
     Dosage: TAB, BID
  6. PANTOPRAZOLE [Concomitant]
     Indication: ULCER
  7. CALCIUM [Concomitant]
  8. VITAMIN D3 [Concomitant]
  9. MULTIVITAMIN [Concomitant]

REACTIONS (7)
  - Blood urine present [Recovered/Resolved]
  - Drug dose omission [Unknown]
  - Medication error [Unknown]
  - Lung infection [Unknown]
  - Spinal fracture [Unknown]
  - Sleep disorder due to a general medical condition [Unknown]
  - Spinal pain [Unknown]
